FAERS Safety Report 9016940 (Version 2)
Quarter: 2013Q1

REPORT INFORMATION
  Report Type: Spontaneous
  Country: US (occurrence: US)
  Receive Date: 20130117
  Receipt Date: 20130319
  Transmission Date: 20140127
  Serious: No
  Sender: FDA-Public Use
  Company Number: US-009507513-1301USA003398

PATIENT
  Sex: Female

DRUGS (1)
  1. SINGULAIR [Suspect]
     Dosage: 1 TABLET ONCE DAILY AT BEDTIME
     Route: 048

REACTIONS (3)
  - Product odour abnormal [Unknown]
  - Poor quality drug administered [Unknown]
  - No adverse event [Unknown]
